FAERS Safety Report 10089315 (Version 1)
Quarter: 2014Q2

REPORT INFORMATION
  Report Type: Spontaneous
  Country: US (occurrence: None)
  Receive Date: 20140418
  Receipt Date: 20140418
  Transmission Date: 20141212
  Serious: Yes (Other)
  Sender: FDA-Public Use
  Company Number: None

PATIENT
  Age: 17 Year
  Sex: Male

DRUGS (2)
  1. KLONOPIN [Suspect]
     Indication: EPILEPSY
     Dosage: 1 1/2 BID PO
     Route: 048
     Dates: start: 201004
  2. KLONOPIN [Suspect]
     Indication: BALTIC MYOCLONIC EPILEPSY
     Dosage: 1 1/2 BID PO
     Route: 048
     Dates: start: 201004

REACTIONS (3)
  - Convulsion [None]
  - Anxiety [None]
  - Product substitution issue [None]
